FAERS Safety Report 24063481 (Version 1)
Quarter: 2024Q3

REPORT INFORMATION
  Report Type: Spontaneous
  Country: FR (occurrence: FR)
  Receive Date: 20240709
  Receipt Date: 20240709
  Transmission Date: 20241017
  Serious: Yes (Hospitalization, Other)
  Sender: AUROBINDO
  Company Number: FR-AFSSAPS-CN2024000635

PATIENT
  Age: 15 Day
  Sex: Male
  Weight: 4.4 kg

DRUGS (2)
  1. HYDROXYZINE [Suspect]
     Active Substance: HYDROXYZINE HYDROCHLORIDE
     Indication: Generalised anxiety disorder
     Dosage: 25 MILLIGRAM, ONCE A DAY
     Route: 064
     Dates: start: 20230609, end: 20240311
  2. VENLAFAXINE [Suspect]
     Active Substance: VENLAFAXINE HYDROCHLORIDE
     Indication: Generalised anxiety disorder
     Dosage: 37.5 MILLIGRAM, ONCE A DAY
     Route: 064
     Dates: start: 20230609, end: 20240311

REACTIONS (2)
  - Non-compaction cardiomyopathy [Not Recovered/Not Resolved]
  - Maternal exposure during pregnancy [Recovered/Resolved]

NARRATIVE: CASE EVENT DATE: 20240326
